FAERS Safety Report 6526562-6 (Version None)
Quarter: 2010Q1

REPORT INFORMATION
  Report Type: 
  Country: None (occurrence: None)
  Receive Date: 20100105
  Receipt Date: 20091223
  Transmission Date: 20100710
  Serious: Yes (Other)
  Sender: FDA-Public Use
  Company Number: PHEH2009US14916

PATIENT
  Sex: Male

DRUGS (3)
  1. EXJADE [Suspect]
     Indication: SERUM FERRITIN INCREASED
     Dosage: 500 MG, QID
     Route: 048
     Dates: start: 20091026, end: 20091110
  2. EXJADE [Suspect]
     Dosage: ONE TABLET QD
     Route: 048
     Dates: start: 20091117
  3. EXJADE [Suspect]
     Dosage: TWO TABLETS QD
     Route: 048

REACTIONS (13)
  - BONE MARROW TRANSPLANT [None]
  - DIZZINESS [None]
  - DRUG INEFFECTIVE [None]
  - FATIGUE [None]
  - FEELING ABNORMAL [None]
  - HEADACHE [None]
  - LOSS OF CONSCIOUSNESS [None]
  - NASOPHARYNGITIS [None]
  - NAUSEA [None]
  - RED BLOOD CELL COUNT DECREASED [None]
  - VERTIGO [None]
  - VISION BLURRED [None]
  - VOMITING [None]
